FAERS Safety Report 10881291 (Version 1)
Quarter: 2015Q1

REPORT INFORMATION
  Report Type: Spontaneous
  Country: US (occurrence: US)
  Receive Date: 20150303
  Receipt Date: 20150303
  Transmission Date: 20150721
  Serious: Yes (Death)
  Sender: FDA-Public Use
  Company Number: US-BANPHARM-20153570

PATIENT
  Age: 44 Year
  Sex: Female

DRUGS (8)
  1. TRAMADOL [Suspect]
     Active Substance: TRAMADOL
  2. DEXTROMETHORPHAN [Suspect]
     Active Substance: DEXTROMETHORPHAN
  3. HYDROMORPHONE [Suspect]
     Active Substance: HYDROMORPHONE
  4. DOXEPIN [Suspect]
     Active Substance: DOXEPIN
  5. CLONAZEPAM. [Suspect]
     Active Substance: CLONAZEPAM
  6. METHYLPHENIDATE [Suspect]
     Active Substance: METHYLPHENIDATE
  7. ACETAMINOPHEN. [Suspect]
     Active Substance: ACETAMINOPHEN
  8. DIPHENHYDRAMINE UNKNOWN PRODUCT [Suspect]
     Active Substance: DIPHENHYDRAMINE

REACTIONS (2)
  - Drug abuse [Fatal]
  - Exposure via ingestion [None]
